FAERS Safety Report 17442543 (Version 1)
Quarter: 2020Q1

REPORT INFORMATION
  Report Type: Spontaneous
  Country: GR (occurrence: GR)
  Receive Date: 20200220
  Receipt Date: 20200220
  Transmission Date: 20200409
  Serious: Yes (Congenital Anomaly, Other)
  Sender: FDA-Public Use
  Company Number: GR-ALLERGAN-2008282US

PATIENT
  Sex: Male
  Weight: 2.61 kg

DRUGS (3)
  1. PREDNISOLONE UNK [Suspect]
     Active Substance: PREDNISOLONE
     Indication: EXPOSURE DURING PREGNANCY
     Dosage: UNK
     Route: 064
  2. ACETYLSALICYLIC ACID [Suspect]
     Active Substance: ASPIRIN
     Indication: EXPOSURE DURING PREGNANCY
     Dosage: UNK
     Route: 064
  3. HYDROXYCHLOROQUINE SULFATE. [Suspect]
     Active Substance: HYDROXYCHLOROQUINE SULFATE
     Indication: EXPOSURE DURING PREGNANCY
     Dosage: UNK
     Route: 064

REACTIONS (4)
  - Respiratory distress [Unknown]
  - Pregnancy [Unknown]
  - Heart block congenital [Unknown]
  - Bradycardia foetal [Unknown]
